FAERS Safety Report 8058881-9 (Version None)
Quarter: 2012Q1

REPORT INFORMATION
  Report Type: 
  Country: None (occurrence: None)
  Receive Date: 20120120
  Receipt Date: 20111019
  Transmission Date: 20120608
  Serious: Yes (Other)
  Sender: FDA-Public Use
  Company Number: US-BRISTOL-MYERS SQUIBB COMPANY-16176372

PATIENT
  Age: 45 Year
  Sex: Male
  Weight: 126 kg

DRUGS (1)
  1. YERVOY [Suspect]
     Dosage: STRENGH:3MG/KG 2ND DOSE 14SEP2011,380MG 3RD DOSE 05OCT2011,370MG
     Dates: start: 20110824

REACTIONS (1)
  - VIITH NERVE PARALYSIS [None]
